FAERS Safety Report 23545210 (Version 1)
Quarter: 2024Q1

REPORT INFORMATION
  Report Type: Report from Study
  Country: US (occurrence: US)
  Receive Date: 20240220
  Receipt Date: 20240220
  Transmission Date: 20240409
  Serious: Yes (Other)
  Sender: FDA-Public Use
  Company Number: US-AMGEN-USASL2024032976

PATIENT
  Age: 58 Year
  Sex: Female

DRUGS (1)
  1. OTEZLA [Suspect]
     Active Substance: APREMILAST
     Indication: Psoriatic arthropathy
     Dosage: 30 MILLIGRAM, BID
     Route: 065

REACTIONS (4)
  - Dysentery [Not Recovered/Not Resolved]
  - Headache [Not Recovered/Not Resolved]
  - Irritable bowel syndrome [Unknown]
  - Dehydration [Unknown]
